APPROVED DRUG PRODUCT: ALPRAZOLAM
Active Ingredient: ALPRAZOLAM
Strength: 2MG
Dosage Form/Route: TABLET, EXTENDED RELEASE;ORAL
Application: A077968 | Product #002
Applicant: IMPAX LABORATORIES INC
Approved: May 24, 2007 | RLD: No | RS: No | Type: DISCN